FAERS Safety Report 7367112-4 (Version None)
Quarter: 2011Q1

REPORT INFORMATION
  Report Type: 
  Country: None (occurrence: None)
  Receive Date: 20110322
  Receipt Date: 20110315
  Transmission Date: 20110831
  Serious: Yes (Hospitalization, Other)
  Sender: FDA-Public Use
  Company Number: US-AMGEN-USASP2010009459

PATIENT
  Age: 40 Year
  Sex: Female

DRUGS (1)
  1. EPOGEN [Suspect]
     Indication: PERITONEAL DIALYSIS
     Dosage: 30000 IU, 3 TIMES/WK
     Route: 058
     Dates: start: 19990101, end: 20101101

REACTIONS (4)
  - ANAEMIA [None]
  - DEEP VEIN THROMBOSIS [None]
  - DRUG SPECIFIC ANTIBODY PRESENT [None]
  - PULMONARY EMBOLISM [None]
